FAERS Safety Report 15498144 (Version 1)
Quarter: 2018Q4

REPORT INFORMATION
  Report Type: Spontaneous
  Country: US (occurrence: US)
  Receive Date: 20181005
  Receipt Date: 20181005
  Transmission Date: 20190205
  Serious: No
  Sender: FDA-Public Use
  Company Number: None

PATIENT
  Age: 75 Year
  Sex: Female
  Weight: 96.16 kg

DRUGS (3)
  1. HYDROXYCHLOROQUINE 200 MG TAB [Suspect]
     Active Substance: HYDROXYCHLOROQUINE
     Indication: RHEUMATOID ARTHRITIS
     Route: 048
     Dates: start: 201612
  2. METHOTREXATE 2.5 MG TABLET, [Suspect]
     Active Substance: METHOTREXATE SODIUM
     Indication: RHEUMATOID ARTHRITIS
     Route: 048
     Dates: start: 201612
  3. ORENCIA [Concomitant]
     Active Substance: ABATACEPT

REACTIONS (1)
  - Sinusitis [None]
